FAERS Safety Report 4631009-0 (Version None)
Quarter: 2005Q2

REPORT INFORMATION
  Report Type: 
  Country: None (occurrence: None)
  Receive Date: 20050406
  Receipt Date: 20050406
  Transmission Date: 20051028
  Serious: Yes (Life-Threatening, Hospitalization)
  Sender: FDA-Public Use
  Company Number: None

PATIENT
  Age: 79 Year
  Sex: Male
  Weight: 71.5 kg

DRUGS (1)
  1. DIGITEX [Suspect]
     Indication: ATRIAL FIBRILLATION
     Dosage: 0.25MG  DAILY  ORAL
     Route: 048
     Dates: start: 19950101, end: 20050403

REACTIONS (5)
  - NODAL RHYTHM [None]
  - PANCREATITIS [None]
  - RENAL FAILURE ACUTE [None]
  - SEPSIS [None]
  - TROPONIN INCREASED [None]
